FAERS Safety Report 7505156-X (Version None)
Quarter: 2011Q2

REPORT INFORMATION
  Report Type: 
  Country: None (occurrence: None)
  Receive Date: 20110526
  Receipt Date: 20101001
  Transmission Date: 20111010
  Serious: Yes (Hospitalization)
  Sender: FDA-Public Use
  Company Number: US-BAYER-201024862NA

PATIENT
  Age: 37 Year
  Sex: Female
  Weight: 77.098 kg

DRUGS (6)
  1. YAZ [Suspect]
  2. I.V. SOLUTIONS [Concomitant]
     Dosage: UNK
     Route: 042
     Dates: start: 20080529
  3. MORPHINE [Concomitant]
     Indication: ABDOMINAL PAIN UPPER
     Dosage: UNK
     Dates: start: 20080529
  4. ZOFRAN [Concomitant]
     Dosage: UNK
     Dates: start: 20080529
  5. YAZ [Suspect]
     Indication: CONTRACEPTION
     Dosage: UNK
     Route: 048
     Dates: start: 20070726, end: 20100715
  6. PHENERGAN HCL [Concomitant]
     Indication: NAUSEA
     Dosage: UNK
     Dates: start: 20080529

REACTIONS (6)
  - CHOLECYSTITIS ACUTE [None]
  - CHOLELITHIASIS [None]
  - MENTAL DISORDER [None]
  - GALLBLADDER CHOLESTEROLOSIS [None]
  - BILIARY COLIC [None]
  - CHOLECYSTITIS CHRONIC [None]
